FAERS Safety Report 4632803-2 (Version None)
Quarter: 2005Q2

REPORT INFORMATION
  Report Type: 
  Country: None (occurrence: None)
  Receive Date: 20050325
  Receipt Date: 20041217
  Transmission Date: 20051028
  Serious: No
  Sender: FDA-Public Use
  Company Number: USA041286464

PATIENT
  Age: 58 Year
  Sex: Female

DRUGS (7)
  1. FORTEO [Suspect]
     Indication: OSTEOPOROSIS
     Dates: start: 20041101
  2. FOSAMAX [Concomitant]
  3. NORVASC [Concomitant]
  4. SYNTHROID [Concomitant]
  5. AMBIEN [Concomitant]
  6. CALCIUM GLUCONATE [Concomitant]
  7. MULTIVITAMIN [Concomitant]

REACTIONS (4)
  - BLOOD CALCIUM INCREASED [None]
  - INJECTION SITE ERYTHEMA [None]
  - INJECTION SITE REACTION [None]
  - PAIN [None]
